FAERS Safety Report 7527368-1 (Version None)
Quarter: 2011Q2

REPORT INFORMATION
  Report Type: 
  Country: None (occurrence: None)
  Receive Date: 20110512
  Receipt Date: 20110406
  Transmission Date: 20111010
  Serious: Yes (Other)
  Sender: FDA-Public Use
  Company Number: 1000019910

PATIENT
  Age: 56 Year
  Sex: Female

DRUGS (8)
  1. PRAVASTATNI (PRAVASTATIN) (40 MILLIGRAM, TABLETS) (PRAVASTATIN) [Concomitant]
  2. SAVELLA [Suspect]
     Indication: FIBROMYALGIA
     Dosage: 200 MG (100 MG,2 IN 1 D),ORAL ; 100 MG (50 MG,2 IN 1 D),ORAL
     Route: 048
  3. ZYRTEC (CETIRIZINE) (TABLETS) (CETIRIZINE) [Concomitant]
  4. SAVELLA [Suspect]
     Indication: FIBROMYALGIA
     Dosage: SEE IMAGE
     Route: 048
  5. SAVELLA [Suspect]
     Indication: FIBROMYALGIA
     Dosage: SEE IMAGE
     Route: 048
     Dates: start: 20100601, end: 20100601
  6. SAVELLA [Suspect]
     Indication: FIBROMYALGIA
     Dosage: SEE IMAGE
     Route: 048
  7. CYCLOBENZAPRINE HCL [Concomitant]
  8. SULFASALAZINE (SULFASALAZINE) (SULFASALAZINE) [Concomitant]

REACTIONS (6)
  - ANXIETY [None]
  - MOOD SWINGS [None]
  - DEPRESSION [None]
  - SUICIDAL IDEATION [None]
  - MEMORY IMPAIRMENT [None]
  - CONFUSIONAL STATE [None]
